FAERS Safety Report 8735163 (Version 7)
Quarter: 2014Q1

REPORT INFORMATION
  Report Type: Spontaneous
  Country: US (occurrence: US)
  Receive Date: 20120821
  Receipt Date: 20140127
  Transmission Date: 20141002
  Serious: Yes (Other)
  Sender: FDA-Public Use
  Company Number: US-ROCHE-789031

PATIENT
  Age: 18 Year
  Sex: Male
  Weight: 86.26 kg

DRUGS (1)
  1. ACCUTANE [Suspect]
     Indication: ACNE
     Route: 065
     Dates: start: 20020515, end: 2003

REACTIONS (18)
  - Colitis ulcerative [Unknown]
  - Inflammatory bowel disease [Unknown]
  - Emotional distress [Unknown]
  - Depression [Unknown]
  - Mental disorder [Unknown]
  - Bipolar disorder [Unknown]
  - Suicidal ideation [Unknown]
  - Irritable bowel syndrome [Unknown]
  - Epistaxis [Unknown]
  - Upper respiratory tract infection [Unknown]
  - Conjunctivitis [Unknown]
  - Pharyngitis [Unknown]
  - Rash macular [Unknown]
  - Upper respiratory tract infection [Unknown]
  - Ear pain [Unknown]
  - Conjunctivitis [Unknown]
  - Back pain [Unknown]
  - Neck pain [Unknown]
